FAERS Safety Report 5102797-4 (Version None)
Quarter: 2006Q3

REPORT INFORMATION
  Report Type: 
  Country: None (occurrence: None)
  Receive Date: 20060907
  Receipt Date: 20060825
  Transmission Date: 20061208
  Serious: Yes (Hospitalization)
  Sender: FDA-Public Use
  Company Number: 056-C5013-06050181

PATIENT
  Age: 64 Year
  Sex: Female

DRUGS (3)
  1. REVLIMID [Suspect]
     Indication: MYELODYSPLASTIC SYNDROME
     Dosage: 5 MG, 1 IN 1 D, ORAL
     Route: 048
     Dates: start: 20060327, end: 20060521
  2. REVLIMID [Suspect]
     Indication: MYELODYSPLASTIC SYNDROME
     Dosage: UNK, 1 IN 1 D, ORAL
     Route: 048
     Dates: start: 20051129, end: 20060327
  3. DESFERAL (DEFEROXAMINE MESILATE) [Concomitant]

REACTIONS (9)
  - ANAEMIA [None]
  - C-REACTIVE PROTEIN INCREASED [None]
  - FOOD POISONING [None]
  - NEUTROPHIL COUNT DECREASED [None]
  - PLATELET COUNT DECREASED [None]
  - RALES [None]
  - SEPSIS [None]
  - SPUTUM ABNORMAL [None]
  - WHITE BLOOD CELL COUNT DECREASED [None]
